FAERS Safety Report 11124007 (Version 1)
Quarter: 2015Q2

REPORT INFORMATION
  Report Type: Spontaneous
  Country: US (occurrence: US)
  Receive Date: 20150520
  Receipt Date: 20150520
  Transmission Date: 20150821
  Serious: No
  Sender: FDA-Public Use
  Company Number: US-AMGEN-USASP2015048331

PATIENT
  Age: 65 Year
  Sex: Female

DRUGS (1)
  1. ENBREL [Suspect]
     Active Substance: ETANERCEPT
     Indication: PSORIATIC ARTHROPATHY
     Dosage: 50 MG, QWK
     Route: 065
     Dates: start: 20030101

REACTIONS (11)
  - Headache [Recovering/Resolving]
  - Cough [Recovering/Resolving]
  - Psoriasis [Not Recovered/Not Resolved]
  - Dyspnoea [Recovering/Resolving]
  - Wound [Not Recovered/Not Resolved]
  - Upper-airway cough syndrome [Recovering/Resolving]
  - Skin haemorrhage [Not Recovered/Not Resolved]
  - Pain in jaw [Recovering/Resolving]
  - Laryngitis [Recovering/Resolving]
  - Eustachian tube obstruction [Recovering/Resolving]
  - Lymphadenopathy [Recovering/Resolving]

NARRATIVE: CASE EVENT DATE: 20150414
